FAERS Safety Report 18140788 (Version 2)
Quarter: 2021Q3

REPORT INFORMATION
  Report Type: Spontaneous
  Country: US (occurrence: US)
  Receive Date: 20200812
  Receipt Date: 20210721
  Transmission Date: 20211014
  Serious: Yes (Hospitalization)
  Sender: FDA-Public Use
  Company Number: US-PFIZER INC-2020309400

PATIENT
  Age: 72 Year
  Sex: Female

DRUGS (8)
  1. METHYL PHENIDATE [METHYLPHENIDATE HYDROCHLORIDE] [Concomitant]
  2. OXYCODONE [Concomitant]
     Active Substance: OXYCODONE
  3. METHADONE [Concomitant]
     Active Substance: METHADONE HYDROCHLORIDE
  4. ESCITALOPRAM [Concomitant]
     Active Substance: ESCITALOPRAM OXALATE
  5. MELOXICAM. [Concomitant]
     Active Substance: MELOXICAM
  6. IBRANCE [Suspect]
     Active Substance: PALBOCICLIB
     Indication: BREAST CANCER
     Dosage: 100 MG, CYCLIC (QD, 21 DAYS AND 7 OFF)
     Route: 048
     Dates: start: 20180131
  7. MORPHINE SULFATE. [Concomitant]
     Active Substance: MORPHINE SULFATE
  8. BETAMETHASONE DIPROPIONATE. [Concomitant]
     Active Substance: BETAMETHASONE DIPROPIONATE

REACTIONS (2)
  - White blood cell count decreased [Unknown]
  - Kidney infection [Unknown]

NARRATIVE: CASE EVENT DATE: 20210707
